FAERS Safety Report 5466776-X (Version None)
Quarter: 2007Q3

REPORT INFORMATION
  Report Type: 
  Country: None (occurrence: None)
  Receive Date: 20070920
  Receipt Date: 20070912
  Transmission Date: 20080115
  Serious: Yes (Life-Threatening, Hospitalization)
  Sender: FDA-Public Use
  Company Number: SPV1-2007-04101

PATIENT
  Age: 42 Year
  Sex: Female

DRUGS (1)
  1. FOSRENOL [Suspect]
     Dosage: 500 MG, 3X/DAY:TID, ORAL
     Route: 048
     Dates: start: 20070329

REACTIONS (4)
  - DYSKINESIA [None]
  - MYOCLONUS [None]
  - PETIT MAL EPILEPSY [None]
  - RESPIRATORY ARREST [None]
